FAERS Safety Report 7343058-2 (Version None)
Quarter: 2011Q1

REPORT INFORMATION
  Report Type: 
  Country: None (occurrence: None)
  Receive Date: 20110310
  Receipt Date: 20110301
  Transmission Date: 20110831
  Serious: Yes (Other)
  Sender: FDA-Public Use
  Company Number: US-BAYER-2011-019392

PATIENT
  Age: 31 Year
  Sex: Female

DRUGS (1)
  1. AVELOX [Suspect]
     Indication: SINUSITIS
     Dosage: 400 MG, QD
     Route: 048
     Dates: start: 20110216, end: 20110221

REACTIONS (5)
  - PARANOIA [None]
  - PARAESTHESIA [None]
  - JOINT SWELLING [None]
  - DIZZINESS [None]
  - ARTHRALGIA [None]
